FAERS Safety Report 7651096-5 (Version None)
Quarter: 2011Q3

REPORT INFORMATION
  Report Type: 
  Country: None (occurrence: None)
  Receive Date: 20110802
  Receipt Date: 20110618
  Transmission Date: 20111222
  Serious: Yes (Other)
  Sender: FDA-Public Use
  Company Number: PHHY2011US54039

PATIENT
  Sex: Female

DRUGS (7)
  1. TEMAZEPAM [Concomitant]
     Dosage: 15 MG, PRN
  2. SYNTHROID [Concomitant]
  3. FAMOTIDINE [Concomitant]
     Dosage: 40 MG,
  4. RECLAST [Suspect]
     Dosage: 5 MG, ONCE IN A YEAR
     Route: 042
     Dates: start: 20110501
  5. ASPIRIN [Suspect]
     Dosage: 85 MG,
  6. ACE BANDAGE [Suspect]
  7. AMLODIPINE [Concomitant]

REACTIONS (8)
  - MOUTH HAEMORRHAGE [None]
  - ARTHRALGIA [None]
  - HAND FRACTURE [None]
  - PAIN IN EXTREMITY [None]
  - ADNEXA UTERI PAIN [None]
  - NECK PAIN [None]
  - ABDOMINAL PAIN UPPER [None]
  - INSOMNIA [None]
